FAERS Safety Report 7558551-7 (Version None)
Quarter: 2011Q2

REPORT INFORMATION
  Report Type: 
  Country: None (occurrence: None)
  Receive Date: 20110621
  Receipt Date: 20110615
  Transmission Date: 20111010
  Serious: Yes (Hospitalization, Other)
  Sender: FDA-Public Use
  Company Number: NO-AMGEN-NORSP2011030982

PATIENT
  Age: 62 Year
  Sex: Female

DRUGS (6)
  1. FOLIC ACID [Concomitant]
     Indication: RHEUMATOID ARTHRITIS
     Dosage: 1 MG SIX DAYS A WEEK
     Route: 048
     Dates: start: 20080601
  2. VOLTAREN [Concomitant]
     Indication: RHEUMATOID ARTHRITIS
     Dosage: 50 MG, 1X/DAY
     Route: 048
     Dates: start: 20080601
  3. ENBREL [Suspect]
     Indication: RHEUMATOID ARTHRITIS
     Dosage: 50 MG, WEEKLY
     Route: 058
     Dates: start: 20080601, end: 20110104
  4. METHOTREXATE [Concomitant]
     Dosage: UNK
     Route: 058
  5. METHOTREXATE [Concomitant]
     Indication: RHEUMATOID ARTHRITIS
     Dosage: 10-15 MG EVERY WEEK
     Route: 048
     Dates: start: 20080601
  6. ASPIRIN [Concomitant]
     Indication: CORONARY ARTERY DISEASE
     Dosage: 75 MG, 1X/DAY
     Route: 048

REACTIONS (1)
  - BREAST CANCER STAGE I [None]
